FAERS Safety Report 20152005 (Version 1)
Quarter: 2021Q4

REPORT INFORMATION
  Report Type: Spontaneous
  Country: US (occurrence: US)
  Receive Date: 20211206
  Receipt Date: 20211206
  Transmission Date: 20220303
  Serious: Yes (Other)
  Sender: FDA-Public Use
  Company Number: US-JNJFOC-20211158928

PATIENT
  Sex: Female

DRUGS (14)
  1. SPRAVATO [Suspect]
     Active Substance: ESKETAMINE
     Indication: Product used for unknown indication
     Dosage: TOTAL 6 DOSE
     Dates: start: 20210922, end: 20211011
  2. ARIPIPRAZOLE [Suspect]
     Active Substance: ARIPIPRAZOLE
     Indication: Depression
     Dosage: IN MORNING/AFTERNOON AND NIGHT, AND IS ONGOING
     Route: 065
  3. ARIPIPRAZOLE [Suspect]
     Active Substance: ARIPIPRAZOLE
     Indication: Anxiety
  4. ARIPIPRAZOLE [Suspect]
     Active Substance: ARIPIPRAZOLE
     Indication: Bipolar disorder
  5. OXCARBAZEPINE [Suspect]
     Active Substance: OXCARBAZEPINE
     Indication: Depression
     Dosage: ONGOING
     Route: 065
  6. OXCARBAZEPINE [Suspect]
     Active Substance: OXCARBAZEPINE
     Indication: Anxiety
  7. OXCARBAZEPINE [Suspect]
     Active Substance: OXCARBAZEPINE
     Indication: Bipolar disorder
  8. XANAX [Suspect]
     Active Substance: ALPRAZOLAM
     Indication: Anxiety
     Dosage: ONGOING
     Route: 065
  9. CYMBALTA [Suspect]
     Active Substance: DULOXETINE HYDROCHLORIDE
     Route: 065
  10. REXULTI [Suspect]
     Active Substance: BREXPIPRAZOLE
     Indication: Depression
     Route: 065
  11. REXULTI [Suspect]
     Active Substance: BREXPIPRAZOLE
     Indication: Anxiety
  12. REXULTI [Suspect]
     Active Substance: BREXPIPRAZOLE
     Indication: Bipolar disorder
  13. FENOFIBRATE [Concomitant]
     Active Substance: FENOFIBRATE
     Indication: Blood cholesterol abnormal
  14. XELJANZ [Concomitant]
     Active Substance: TOFACITINIB CITRATE
     Indication: Arthritis

REACTIONS (2)
  - Suicidal ideation [Not Recovered/Not Resolved]
  - Malaise [Unknown]
